FAERS Safety Report 16476160 (Version 2)
Quarter: 2019Q3

REPORT INFORMATION
  Report Type: Spontaneous
  Country: GB (occurrence: GB)
  Receive Date: 20190625
  Receipt Date: 20190710
  Transmission Date: 20191004
  Serious: Yes (Other)
  Sender: FDA-Public Use
  Company Number: GB-NOVOPROD-668220

PATIENT
  Age: 64 Year
  Sex: Female

DRUGS (1)
  1. VAGIFEM [Suspect]
     Active Substance: ESTRADIOL
     Indication: PRODUCT USED FOR UNKNOWN INDICATION
     Dosage: TAKEN VAGIFEM DAILY FOR 11 +YEARS
     Route: 065
     Dates: start: 200803

REACTIONS (3)
  - Inappropriate schedule of product administration [Unknown]
  - Product prescribing error [Unknown]
  - Endometrial cancer [Unknown]
